FAERS Safety Report 7214716-5 (Version None)
Quarter: 2011Q1

REPORT INFORMATION
  Report Type: 
  Country: None (occurrence: None)
  Receive Date: 20110107
  Receipt Date: 20091216
  Transmission Date: 20110831
  Serious: No
  Sender: FDA-Public Use
  Company Number: A0835421A

PATIENT
  Age: 77 Year
  Sex: Male

DRUGS (5)
  1. SIMVASTATIN [Concomitant]
  2. VITAMINS + MINERALS [Concomitant]
  3. PLAVIX [Concomitant]
  4. LOVAZA [Suspect]
     Indication: BLOOD CHOLESTEROL INCREASED
     Dosage: 2CAP TWICE PER DAY
     Route: 048
     Dates: start: 20061101
  5. ALLOPURINOL [Concomitant]

REACTIONS (2)
  - DYSGEUSIA [None]
  - ERUCTATION [None]
